FAERS Safety Report 11513523 (Version 1)
Quarter: 2015Q3

REPORT INFORMATION
  Report Type: Spontaneous
  Country: CA (occurrence: CA)
  Receive Date: 20150916
  Receipt Date: 20150916
  Transmission Date: 20151125
  Serious: Yes (Hospitalization)
  Sender: FDA-Public Use
  Company Number: CA-ASTELLAS-2015US032759

PATIENT
  Age: 51 Year
  Sex: Male

DRUGS (1)
  1. ADVAGRAF [Suspect]
     Active Substance: TACROLIMUS
     Indication: RENAL TRANSPLANT
     Route: 048
     Dates: start: 20081210

REACTIONS (3)
  - Poor peripheral circulation [Unknown]
  - Localised infection [Not Recovered/Not Resolved]
  - Diabetic complication [Unknown]

NARRATIVE: CASE EVENT DATE: 201503
